FAERS Safety Report 16455788 (Version 2)
Quarter: 2019Q3

REPORT INFORMATION
  Report Type: Spontaneous
  Country: US (occurrence: US)
  Receive Date: 20190620
  Receipt Date: 20190710
  Transmission Date: 20191004
  Serious: No
  Sender: FDA-Public Use
  Company Number: US-INCYTE CORPORATION-2019IN005971

PATIENT

DRUGS (2)
  1. JAKAFI [Suspect]
     Active Substance: RUXOLITINIB
     Dosage: 10 MILLIGRAM
     Route: 065
     Dates: start: 20190628
  2. JAKAFI [Suspect]
     Active Substance: RUXOLITINIB
     Indication: COMPLICATIONS OF BONE MARROW TRANSPLANT
     Dosage: 5 MILLIGRAM, BID
     Route: 048
     Dates: start: 20190603

REACTIONS (6)
  - Pyrexia [Unknown]
  - Off label use [Unknown]
  - Malaise [Unknown]
  - Infection [Unknown]
  - Chills [Unknown]
  - Ill-defined disorder [Recovered/Resolved]

NARRATIVE: CASE EVENT DATE: 20190603
